FAERS Safety Report 7689297-2 (Version None)
Quarter: 2011Q3

REPORT INFORMATION
  Report Type: 
  Country: None (occurrence: None)
  Receive Date: 20110817
  Receipt Date: 20110805
  Transmission Date: 20111222
  Serious: Yes (Other)
  Sender: FDA-Public Use
  Company Number: US-PFIZER INC-2011143934

PATIENT
  Sex: Female

DRUGS (4)
  1. PRISTIQ [Suspect]
     Indication: DEPRESSION
     Dosage: 50 MG, 1X/DAY
     Route: 048
     Dates: start: 20100226
  2. CLONAZEPAM [Concomitant]
  3. FLEXERIL [Concomitant]
  4. MOTRIN [Concomitant]

REACTIONS (19)
  - DRUG DEPENDENCE [None]
  - PARAESTHESIA [None]
  - FATIGUE [None]
  - ANXIETY [None]
  - SOMNOLENCE [None]
  - IRRITABILITY [None]
  - DRY MOUTH [None]
  - DIZZINESS [None]
  - THINKING ABNORMAL [None]
  - HYPERHIDROSIS [None]
  - SENSORY DISTURBANCE [None]
  - CONFUSIONAL STATE [None]
  - DEPRESSION [None]
  - ORGASM ABNORMAL [None]
  - EJACULATION DELAYED [None]
  - ABNORMAL DREAMS [None]
  - LIBIDO DECREASED [None]
  - LETHARGY [None]
  - TINNITUS [None]
